FAERS Safety Report 13119028 (Version 1)
Quarter: 2017Q1

REPORT INFORMATION
  Report Type: Other
  Country: US (occurrence: US)
  Receive Date: 20170116
  Receipt Date: 20170116
  Transmission Date: 20170428
  Serious: Yes (Death)
  Sender: FDA-Public Use
  Company Number: US-LEHIGH_VALLEY-USA-POI0580201700005

PATIENT
  Age: 63 Year
  Sex: Male

DRUGS (10)
  1. POTASSIUM CHLORIDE ORAL SOLUTION [Suspect]
     Active Substance: POTASSIUM CHLORIDE
     Dates: end: 2015
  2. DIGOXIN. [Suspect]
     Active Substance: DIGOXIN
     Dates: end: 2015
  3. FEXOFENADINE [Suspect]
     Active Substance: FEXOFENADINE\FEXOFENADINE HYDROCHLORIDE
     Dates: end: 2015
  4. CARBAMAZEPINE. [Suspect]
     Active Substance: CARBAMAZEPINE
     Dates: end: 2015
  5. ALLOPURINOL. [Suspect]
     Active Substance: ALLOPURINOL
     Dates: end: 2015
  6. SIMVASTATIN. [Suspect]
     Active Substance: SIMVASTATIN
     Dates: end: 2015
  7. VITAMIN C [Suspect]
     Active Substance: ASCORBIC ACID
     Dates: end: 2015
  8. GLIPIZIDE. [Suspect]
     Active Substance: GLIPIZIDE
     Dates: end: 2015
  9. METOLAZONE. [Suspect]
     Active Substance: METOLAZONE
     Dates: end: 2015
  10. FUROSEMIDE. [Suspect]
     Active Substance: FUROSEMIDE
     Dates: end: 2015

REACTIONS (1)
  - Completed suicide [Fatal]

NARRATIVE: CASE EVENT DATE: 2015
